FAERS Safety Report 11393907 (Version 1)
Quarter: 2015Q3

REPORT INFORMATION
  Report Type: Spontaneous
  Country: US (occurrence: None)
  Receive Date: 20150817
  Receipt Date: 20150817
  Transmission Date: 20151125
  Serious: No
  Sender: FDA-Public Use
  Company Number: None

PATIENT
  Age: 64 Year
  Sex: Female
  Weight: 92.53 kg

DRUGS (3)
  1. ASPIRIN. [Concomitant]
     Active Substance: ASPIRIN
  2. METAXALONE. [Concomitant]
     Active Substance: METAXALONE
  3. METOPROLOL SUCC ER [Suspect]
     Active Substance: METOPROLOL SUCCINATE
     Indication: PALPITATIONS
     Dosage: 1/2 TABLET
     Route: 048
     Dates: start: 201507, end: 20150802

REACTIONS (9)
  - Product quality issue [None]
  - Hypotension [None]
  - Dyspnoea [None]
  - Crying [None]
  - Stress [None]
  - Product substitution issue [None]
  - Feeling abnormal [None]
  - Drug hypersensitivity [None]
  - Ventricular extrasystoles [None]

NARRATIVE: CASE EVENT DATE: 20150711
